FAERS Safety Report 5800272-2 (Version None)
Quarter: 2008Q3

REPORT INFORMATION
  Report Type: 
  Country: None (occurrence: None)
  Receive Date: 20080703
  Receipt Date: 20080630
  Transmission Date: 20090109
  Serious: Yes (Life-Threatening, Hospitalization)
  Sender: FDA-Public Use
  Company Number: PHEH2008US05843

PATIENT

DRUGS (1)
  1. EXELON [Suspect]

REACTIONS (2)
  - MECHANICAL VENTILATION [None]
  - RESPIRATORY DISTRESS [None]
